FAERS Safety Report 6024100-8 (Version None)
Quarter: 2008Q4

REPORT INFORMATION
  Report Type: 
  Country: None (occurrence: None)
  Receive Date: 20081230
  Receipt Date: 20081215
  Transmission Date: 20090506
  Serious: Yes (Hospitalization)
  Sender: FDA-Public Use
  Company Number: FR-CELGENEUS-TNZFR200800142

PATIENT
  Sex: Female
  Weight: 98 kg

DRUGS (4)
  1. INNOHEP [Suspect]
     Indication: PULMONARY EMBOLISM
     Route: 058
     Dates: start: 20080806, end: 20080806
  2. LOVENOX [Suspect]
     Route: 058
     Dates: start: 20080803, end: 20080806
  3. CALCIPARINE [Suspect]
     Route: 058
     Dates: start: 20080801, end: 20080803
  4. HEPARIN [Suspect]
     Dates: start: 20080729, end: 20080731

REACTIONS (3)
  - HEPARIN-INDUCED THROMBOCYTOPENIA [None]
  - INTESTINAL ISCHAEMIA [None]
  - PULMONARY EMBOLISM [None]
